FAERS Safety Report 8077210-8 (Version None)
Quarter: 2012Q1

REPORT INFORMATION
  Report Type: 
  Country: None (occurrence: None)
  Receive Date: 20120127
  Receipt Date: 20120123
  Transmission Date: 20120608
  Serious: Yes (Life-Threatening, Hospitalization)
  Sender: FDA-Public Use
  Company Number: PHHO2011US05317

PATIENT
  Sex: Male

DRUGS (11)
  1. DIOVAN [Suspect]
  2. INSULIN GLARGINE [Concomitant]
  3. LASIX [Suspect]
  4. ANGIOTENSIN CONVERTING ENZYME BLOCKERS [Concomitant]
  5. METOPROLOL SUCCINATE [Suspect]
  6. BETA BLOCKING AGENTS [Concomitant]
  7. VERAPAMIL HYDROCHLORIDE [Suspect]
  8. SAXAGLIPTIN [Concomitant]
  9. ALDOSTERONE [Concomitant]
  10. ANTICOAGULANTS [Concomitant]
  11. DIURETICS [Concomitant]

REACTIONS (5)
  - BRADYCARDIA [None]
  - ASTHENIA [None]
  - RENAL FAILURE ACUTE [None]
  - HYPERKALAEMIA [None]
  - HYPOXIA [None]
